FAERS Safety Report 9971463 (Version 1)
Quarter: 2014Q1

REPORT INFORMATION
  Report Type: Report from Study
  Country: US (occurrence: US)
  Receive Date: 20140306
  Receipt Date: 20140306
  Transmission Date: 20141002
  Serious: No
  Sender: FDA-Public Use
  Company Number: US-ABBVIE-13P-163-1150458-00

PATIENT
  Age: 66 Year
  Sex: Female

DRUGS (7)
  1. HUMIRA [Suspect]
     Indication: RHEUMATOID ARTHRITIS
     Dates: start: 20130823
  2. METHOTREXATE [Concomitant]
     Indication: RHEUMATOID ARTHRITIS
     Dosage: 2.5MG 5 TABLETS BY MOUTH
     Route: 048
  3. VALTREX [Concomitant]
     Indication: INFECTION PROPHYLAXIS
     Dosage: 500MG BY MOUTH DAILY
     Route: 048
  4. FOLIC ACID [Concomitant]
     Indication: RHEUMATOID ARTHRITIS
     Dosage: 1MG BY MOUTH DAILY
     Route: 048
  5. KLOR-CON [Concomitant]
     Indication: MINERAL SUPPLEMENTATION
     Dosage: M20 BY MOUTH DAILY
     Route: 048
  6. CALCIUM [Concomitant]
     Indication: MINERAL SUPPLEMENTATION
     Dosage: 250MG BY MOUTH
     Route: 048
  7. VITAMIN D [Concomitant]
     Indication: VITAMIN SUPPLEMENTATION
     Dosage: 400MG BY MOUTH 2 TABLETS DAILY
     Route: 048

REACTIONS (2)
  - Lip blister [Not Recovered/Not Resolved]
  - Influenza [Recovered/Resolved]
